FAERS Safety Report 14254450 (Version 1)
Quarter: 2017Q4

REPORT INFORMATION
  Report Type: Spontaneous
  Country: US (occurrence: US)
  Receive Date: 20171206
  Receipt Date: 20171206
  Transmission Date: 20180321
  Serious: No
  Sender: FDA-Public Use
  Company Number: US-PFIZER INC-2017516487

PATIENT
  Age: 50 Year
  Sex: Female

DRUGS (2)
  1. KLONOPIN [Suspect]
     Active Substance: CLONAZEPAM
     Dosage: UNK
  2. ATROPINE SULFATE/DIPHENOXYLATE HYDROCHLORIDE [Suspect]
     Active Substance: ATROPINE SULFATE\DIPHENOXYLATE HYDROCHLORIDE
     Indication: DIARRHOEA
     Dosage: ONLY TAKING 4 A DAY THE YEAR SHE GOT ON THYROID MEDICATION
     Dates: start: 2007

REACTIONS (17)
  - Depression [Unknown]
  - Fatigue [Unknown]
  - Diarrhoea [Unknown]
  - Lethargy [Unknown]
  - Thyroid disorder [Unknown]
  - Sensory disturbance [Unknown]
  - Asthenia [Unknown]
  - Balance disorder [Unknown]
  - Dry skin [Unknown]
  - Malaise [Unknown]
  - Cystitis [Unknown]
  - Poor quality sleep [Unknown]
  - Neuropathy peripheral [Unknown]
  - Condition aggravated [Unknown]
  - Cerebral disorder [Unknown]
  - Accident [Unknown]
  - Rash [Unknown]

NARRATIVE: CASE EVENT DATE: 2007
